FAERS Safety Report 7987623-8 (Version None)
Quarter: 2011Q4

REPORT INFORMATION
  Report Type: 
  Country: None (occurrence: None)
  Receive Date: 20111216
  Receipt Date: 20110111
  Transmission Date: 20120403
  Serious: No
  Sender: FDA-Public Use
  Company Number: US-BRISTOL-MYERS SQUIBB COMPANY-15225618

PATIENT
  Age: 63 Year
  Sex: Female
  Weight: 54 kg

DRUGS (10)
  1. ASPIRIN [Concomitant]
  2. LIPITOR [Suspect]
  3. PRISTIQ [Concomitant]
  4. ABILIFY [Suspect]
     Dates: start: 20100731
  5. MIRALAX [Suspect]
  6. PRAVASTATIN SODIUM [Concomitant]
  7. MULTI-VITAMIN [Concomitant]
  8. GLYCOLAX [Suspect]
  9. XANAX [Concomitant]
     Dosage: EXTENDED RELEASE
  10. COENZYME Q10 [Concomitant]

REACTIONS (3)
  - BURNING SENSATION [None]
  - SOMNOLENCE [None]
  - ALOPECIA [None]
